FAERS Safety Report 5095844-X (Version None)
Quarter: 2006Q3

REPORT INFORMATION
  Report Type: 
  Country: None (occurrence: None)
  Receive Date: 20060905
  Receipt Date: 20060731
  Transmission Date: 20061208
  Serious: Yes (Other)
  Sender: FDA-Public Use
  Company Number: US-BAYER-200613228BCC

PATIENT
  Age: 84 Year
  Sex: Male
  Weight: 84 kg

DRUGS (8)
  1. ASPIRIN [Suspect]
     Indication: DRUG USE FOR UNKNOWN INDICATION
     Dosage: TOTAL DAILY DOSE: 325 MG  UNIT DOSE: 325 MG
     Route: 048
     Dates: start: 20060201, end: 20060731
  2. ECOTRIN [Suspect]
     Indication: DRUG USE FOR UNKNOWN INDICATION
     Route: 048
     Dates: start: 20041201
  3. ECOTRIN [Suspect]
     Route: 048
     Dates: start: 20060101
  4. PLAVIX [Concomitant]
  5. SYNTHROID [Concomitant]
  6. LOPRESSOR [Concomitant]
  7. PROTONIX [Concomitant]
  8. ZETIA [Concomitant]

REACTIONS (2)
  - ABDOMINAL PAIN UPPER [None]
  - COLITIS ULCERATIVE [None]
